FAERS Safety Report 10492434 (Version 1)
Quarter: 2014Q4

REPORT INFORMATION
  Report Type: Spontaneous
  Country: US (occurrence: US)
  Receive Date: 20141002
  Receipt Date: 20141002
  Transmission Date: 20150528
  Serious: No
  Sender: FDA-Public Use
  Company Number: US-GLAXOSMITHKLINE-A1070969A

PATIENT
  Age: 87 Year
  Sex: Male

DRUGS (4)
  1. BLOOD PRESSURE MEDICATION [Concomitant]
     Active Substance: UNSPECIFIED INGREDIENT
     Indication: HYPERTENSION
  2. THYROID MEDICATION [Concomitant]
     Active Substance: UNSPECIFIED INGREDIENT
  3. SUGAR [Concomitant]
  4. ADVAIR HFA [Suspect]
     Active Substance: FLUTICASONE PROPIONATE\SALMETEROL XINAFOATE
     Indication: CHRONIC OBSTRUCTIVE PULMONARY DISEASE
     Dosage: 1PUFF TWICE PER DAY
     Route: 055
     Dates: start: 2000

REACTIONS (2)
  - Overdose [Unknown]
  - Dizziness [Unknown]

NARRATIVE: CASE EVENT DATE: 20140425
